FAERS Safety Report 18445433 (Version 2)
Quarter: 2021Q1

REPORT INFORMATION
  Report Type: Spontaneous
  Country: DE (occurrence: DE)
  Receive Date: 20201030
  Receipt Date: 20210122
  Transmission Date: 20210419
  Serious: Yes (Hospitalization, Other)
  Sender: FDA-Public Use
  Company Number: DE-TEVA-2020-DE-1841679

PATIENT
  Age: 49 Year
  Sex: Female

DRUGS (1)
  1. GLATIRAMERACETAT ABZ 40 MG/ML [Suspect]
     Active Substance: GLATIRAMER ACETATE
     Indication: MULTIPLE SCLEROSIS

REACTIONS (2)
  - Thyroid mass [Unknown]
  - Goitre [Unknown]

NARRATIVE: CASE EVENT DATE: 2020
